FAERS Safety Report 4381303-6 (Version None)
Quarter: 2004Q2

REPORT INFORMATION
  Report Type: 
  Country: None (occurrence: None)
  Receive Date: 20040616
  Receipt Date: 20040608
  Transmission Date: 20050107
  Serious: No
  Sender: FDA-Public Use
  Company Number: 2004UW11816

PATIENT
  Sex: Female

DRUGS (3)
  1. ENTOCORT EC [Suspect]
     Indication: CROHN'S DISEASE
     Dosage: 3 MG PO
     Route: 048
     Dates: start: 20031201, end: 20040101
  2. ENTOCORT EC [Suspect]
     Indication: CROHN'S DISEASE
     Dosage: 3 MG PO
     Route: 048
     Dates: start: 20040201, end: 20040201
  3. ENTOCORT EC [Suspect]
     Indication: CROHN'S DISEASE
     Dosage: 3 MG PO
     Route: 048
     Dates: start: 20040501

REACTIONS (1)
  - MULTIPLE SCLEROSIS [None]
